FAERS Safety Report 25736713 (Version 1)
Quarter: 2025Q3

REPORT INFORMATION
  Report Type: Spontaneous
  Country: US (occurrence: None)
  Receive Date: 20250828
  Receipt Date: 20250828
  Transmission Date: 20251021
  Serious: Yes (Hospitalization)
  Sender: FDA-CTU
  Company Number: None

PATIENT
  Age: 62 Year
  Sex: Female

DRUGS (1)
  1. TEZSPIRE [Suspect]
     Active Substance: TEZEPELUMAB-EKKO
     Indication: Asthma
     Dosage: OTHER STRENGTH : 210MG/1.91 ML;?FREQUENCY : MONTHLY;?

REACTIONS (6)
  - Fall [None]
  - Balance disorder [None]
  - Injection site haemorrhage [None]
  - Injection site pain [None]
  - Rib fracture [None]
  - Vomiting [None]
